FAERS Safety Report 19925810 (Version 5)
Quarter: 2022Q4

REPORT INFORMATION
  Report Type: Report from Study
  Country: US (occurrence: US)
  Receive Date: 20211006
  Receipt Date: 20221205
  Transmission Date: 20230113
  Serious: Yes (Hospitalization, Other)
  Sender: FDA-Public Use
  Company Number: US-TAKEDA-2021TUS061157

PATIENT
  Age: 36 Year
  Sex: Female
  Weight: 59 kg

DRUGS (89)
  1. TEDUGLUTIDE [Suspect]
     Active Substance: TEDUGLUTIDE
     Indication: Short-bowel syndrome
     Dosage: 1 MILLIGRAM, QD
     Route: 042
     Dates: start: 20210128, end: 20210503
  2. TEDUGLUTIDE [Suspect]
     Active Substance: TEDUGLUTIDE
     Indication: Short-bowel syndrome
     Dosage: 1 MILLIGRAM, QD
     Route: 042
     Dates: start: 20210128, end: 20210503
  3. TEDUGLUTIDE [Suspect]
     Active Substance: TEDUGLUTIDE
     Indication: Short-bowel syndrome
     Dosage: 1 MILLIGRAM, QD
     Route: 042
     Dates: start: 20210128, end: 20210503
  4. TEDUGLUTIDE [Suspect]
     Active Substance: TEDUGLUTIDE
     Indication: Short-bowel syndrome
     Dosage: 1 MILLIGRAM, QD
     Route: 042
     Dates: start: 20210128, end: 20210503
  5. TEDUGLUTIDE [Suspect]
     Active Substance: TEDUGLUTIDE
     Dosage: 3 MILLIGRAM, QD
     Route: 042
     Dates: start: 20210505
  6. TEDUGLUTIDE [Suspect]
     Active Substance: TEDUGLUTIDE
     Dosage: 3 MILLIGRAM, QD
     Route: 042
     Dates: start: 20210505
  7. TEDUGLUTIDE [Suspect]
     Active Substance: TEDUGLUTIDE
     Dosage: 3 MILLIGRAM, QD
     Route: 042
     Dates: start: 20210505
  8. TEDUGLUTIDE [Suspect]
     Active Substance: TEDUGLUTIDE
     Dosage: 3 MILLIGRAM, QD
     Route: 042
     Dates: start: 20210505
  9. METHYLPREDNISOLONE ACETATE [Concomitant]
     Active Substance: METHYLPREDNISOLONE ACETATE
     Indication: Pneumonia
     Dosage: 40 MILLIGRAM, QD
     Route: 058
     Dates: start: 20200827, end: 20200827
  10. METOPROLOL TARTRATE [Concomitant]
     Active Substance: METOPROLOL TARTRATE
     Indication: Tachycardia
     Dosage: 5 MILLIGRAM, QD
     Route: 058
     Dates: start: 20200827, end: 20200827
  11. MEROPENEM ACIC [Concomitant]
     Indication: Sepsis
     Dosage: 1 GRAM, QD
     Route: 042
     Dates: start: 20200826, end: 20200829
  12. CLONAZEPAM [Concomitant]
     Active Substance: CLONAZEPAM
     Indication: Anxiety
     Dosage: 0.5 MILLIGRAM, BID
     Route: 048
     Dates: start: 20200826, end: 20200827
  13. ELIQUIS [Concomitant]
     Active Substance: APIXABAN
     Indication: Deep vein thrombosis
     Dosage: 5 MILLIGRAM, BID
     Route: 048
     Dates: start: 20210405, end: 20210717
  14. LOPERAMIDE [Concomitant]
     Active Substance: LOPERAMIDE
     Indication: Diarrhoea
     Dosage: 6 MILLIGRAM, BID
     Route: 048
  15. LOPERAMIDE [Concomitant]
     Active Substance: LOPERAMIDE
     Dosage: 4 MILLIGRAM, QID
     Route: 048
     Dates: start: 20200809, end: 20200812
  16. LOPERAMIDE [Concomitant]
     Active Substance: LOPERAMIDE
     Dosage: 2 MILLIGRAM, QD
     Route: 048
     Dates: start: 20201104, end: 20210717
  17. LOMOTIL [Concomitant]
     Active Substance: ATROPINE SULFATE\DIPHENOXYLATE HYDROCHLORIDE
     Dosage: 2 DOSAGE FORM, TID
     Route: 048
  18. GLUTAMINE [Concomitant]
     Active Substance: GLUTAMINE
     Indication: Hypovitaminosis
     Dosage: 5 GRAM, TID
     Route: 048
  19. GLUTAMINE [Concomitant]
     Active Substance: GLUTAMINE
     Indication: Mineral deficiency
     Dosage: 15 GRAM, BID
     Route: 048
     Dates: start: 20210503
  20. GUAR GUM [Concomitant]
     Active Substance: GUAR GUM
     Indication: Malabsorption
     Dosage: 4 GRAM, TID
     Route: 048
  21. GUAR GUM [Concomitant]
     Active Substance: GUAR GUM
     Dosage: UNK UNK, QID
     Route: 048
     Dates: start: 20180919
  22. LYRICA [Concomitant]
     Active Substance: PREGABALIN
     Indication: Anxiety
     Dosage: 50 MILLIGRAM, BID
     Route: 048
     Dates: start: 20200807, end: 20200825
  23. MAGNESIUM GLUCONATE [Concomitant]
     Active Substance: MAGNESIUM GLUCONATE
     Dosage: 500 MILLIGRAM, BID
     Route: 048
  24. OXCARBAZEPINE [Concomitant]
     Active Substance: OXCARBAZEPINE
     Dosage: 150 MILLIGRAM
     Route: 048
  25. SMOFLIPID [Concomitant]
     Active Substance: FISH OIL\MEDIUM-CHAIN TRIGLYCERIDES\OLIVE OIL\SOYBEAN OIL
  26. TIZANIDINE [Concomitant]
     Active Substance: TIZANIDINE
     Dosage: 4 MILLIGRAM, TID
     Route: 048
  27. TPN [Concomitant]
     Active Substance: AMINO ACIDS\DEXTROSE\ELECTROLYTES NOS\SOYBEAN OIL
  28. ACETAMINOPHEN [Concomitant]
     Active Substance: ACETAMINOPHEN
     Indication: Procedural pain
     Dosage: 325 MILLIGRAM
     Route: 048
     Dates: start: 20210930
  29. OXYCODONE [Concomitant]
     Active Substance: OXYCODONE
     Indication: Procedural pain
     Dosage: 10 MILLIGRAM, AS NEEDED
     Route: 048
     Dates: start: 20210930, end: 20211016
  30. APIXABAN [Concomitant]
     Active Substance: APIXABAN
     Dosage: 5 MILLIGRAM, BID
     Route: 048
  31. HYDROMORPHONE [Concomitant]
     Active Substance: HYDROMORPHONE
     Indication: Pain
     Dosage: 0.5 MILLIGRAM
     Route: 042
  32. HYDROMORPHONE [Concomitant]
     Active Substance: HYDROMORPHONE
     Dosage: 1 MILLIGRAM
     Route: 048
     Dates: start: 20211203, end: 20211208
  33. DIPHENHYDRAMINE [Concomitant]
     Active Substance: DIPHENHYDRAMINE
     Dosage: 0.5 MILLILITER
     Route: 042
  34. APIXABAN [Concomitant]
     Active Substance: APIXABAN
     Dosage: UNK, BID
     Route: 065
  35. PANCRELIPASE 20000 [Concomitant]
     Dosage: UNK, TID
     Route: 048
  36. VIVONEX T.E.N. [Concomitant]
  37. CREON [Concomitant]
     Active Substance: PANCRELIPASE AMYLASE\PANCRELIPASE LIPASE\PANCRELIPASE PROTEASE
     Route: 065
  38. VITAMIN D2 [Concomitant]
     Active Substance: ERGOCALCIFEROL
     Dosage: 50 MICROGRAM, BID
     Route: 048
  39. VIMPAT [Concomitant]
     Active Substance: LACOSAMIDE
     Indication: Anticonvulsant drug level
     Dosage: 100 MILLIGRAM, BID
     Route: 048
  40. VIMPAT [Concomitant]
     Active Substance: LACOSAMIDE
     Indication: Seizure
     Dosage: 200 MILLIGRAM, QD
     Route: 048
     Dates: start: 20210718, end: 20211130
  41. VIMPAT [Concomitant]
     Active Substance: LACOSAMIDE
     Dosage: 100 MILLIGRAM, QD
     Route: 048
     Dates: start: 20211203
  42. LOVENOX [Concomitant]
     Active Substance: ENOXAPARIN SODIUM
     Dosage: 60 MILLIGRAM
     Route: 058
  43. CHOLECALCIFEROL [Concomitant]
     Active Substance: CHOLECALCIFEROL
     Indication: Hypovitaminosis
     Dosage: UNK UNK, QD
     Route: 048
     Dates: start: 20170803
  44. PROTINEX [Concomitant]
     Indication: Malnutrition
     Dosage: 30 MILLILITER
     Route: 048
     Dates: start: 20180919
  45. CYANOCOBALAMIN [Concomitant]
     Active Substance: CYANOCOBALAMIN
     Indication: Hypovitaminosis
     Dosage: 1000 MICROGRAM, QD
     Route: 030
     Dates: start: 20160726
  46. ESCITALOPRAM [Concomitant]
     Active Substance: ESCITALOPRAM OXALATE
     Indication: Mixed anxiety and depressive disorder
     Dosage: 10 MILLIGRAM, QD
     Route: 048
     Dates: start: 20160726, end: 20200122
  47. FENTANYL [Concomitant]
     Active Substance: FENTANYL
     Indication: Pain
     Dosage: 75 MICROGRAM
     Route: 062
     Dates: start: 20170803, end: 20200720
  48. FENTANYL [Concomitant]
     Active Substance: FENTANYL
     Dosage: 50 MICROGRAM
     Route: 058
     Dates: start: 20200807, end: 20200807
  49. FENTANYL [Concomitant]
     Active Substance: FENTANYL
     Dosage: 50 MICROGRAM
     Route: 058
     Dates: start: 20200810, end: 20200810
  50. GLUTASOLVE [Concomitant]
     Indication: Malnutrition
     Dosage: 15 GRAM
     Route: 050
     Dates: start: 20180919
  51. ONDANSETRON [Concomitant]
     Active Substance: ONDANSETRON
     Indication: Nausea
     Dosage: 4 MILLIGRAM
     Route: 048
     Dates: start: 20200804, end: 20200825
  52. ONDANSETRON [Concomitant]
     Active Substance: ONDANSETRON
     Dosage: 4 MILLIGRAM
     Route: 042
     Dates: start: 20210718, end: 20210729
  53. VANCOMYCIN [Concomitant]
     Active Substance: VANCOMYCIN
     Indication: Sepsis
     Dosage: 750 MILLIGRAM, QD
     Route: 042
     Dates: start: 20200804, end: 20200811
  54. VANCOMYCIN [Concomitant]
     Active Substance: VANCOMYCIN
     Dosage: UNK UNK, BID
     Route: 042
     Dates: start: 20200825, end: 20200826
  55. VANCOMYCIN [Concomitant]
     Active Substance: VANCOMYCIN
     Dosage: 1250 MILLIGRAM, QD
     Route: 042
     Dates: start: 20200826, end: 20200831
  56. ROCEPHIN [Concomitant]
     Active Substance: CEFTRIAXONE SODIUM
     Indication: Sepsis
     Dosage: 2 GRAM, QD
     Route: 042
     Dates: start: 20200804, end: 20200826
  57. TRILEPTAL [Concomitant]
     Active Substance: OXCARBAZEPINE
     Indication: Seizure
     Dosage: 150 MILLIGRAM, BID
     Route: 048
     Dates: start: 20200805, end: 20200828
  58. HEPARIN [Concomitant]
     Active Substance: HEPARIN SODIUM
     Indication: Catheter removal
     Dosage: UNK
     Route: 058
     Dates: start: 20200805, end: 20200805
  59. VITAMIN A [Concomitant]
     Active Substance: VITAMIN A
     Indication: Mineral deficiency
     Dosage: UNK UNK, QD
     Route: 048
     Dates: start: 20200807, end: 20200812
  60. VITAMIN A [Concomitant]
     Active Substance: VITAMIN A
     Dosage: 3 MILLIGRAM, QD
     Route: 048
     Dates: start: 20200813
  61. EFFEXOR [Concomitant]
     Active Substance: VENLAFAXINE HYDROCHLORIDE
     Indication: Depression
     Dosage: 37.5 MILLIGRAM, QD
     Route: 048
     Dates: start: 20200124, end: 20200807
  62. EFFEXOR [Concomitant]
     Active Substance: VENLAFAXINE HYDROCHLORIDE
     Dosage: 25 MILLIGRAM, QD
     Route: 048
     Dates: start: 20200807, end: 20200901
  63. MELATONIN [Concomitant]
     Active Substance: MELATONIN
     Indication: Insomnia
     Dosage: 3 MILLIGRAM
     Route: 048
     Dates: start: 20200807, end: 20200901
  64. LIDOCAINE [Concomitant]
     Active Substance: LIDOCAINE
     Indication: Catheter removal
     Dosage: UNK
     Route: 058
     Dates: start: 20200810, end: 20200810
  65. FLUCONAZOLE [Concomitant]
     Active Substance: FLUCONAZOLE
     Indication: Sepsis
     Dosage: 200 MILLIGRAM, QD
     Route: 042
     Dates: start: 20200804, end: 20200806
  66. FLUCONAZOLE [Concomitant]
     Active Substance: FLUCONAZOLE
     Indication: Systemic candida
     Dosage: 800 MILLIGRAM, QD
     Route: 042
     Dates: start: 20200827, end: 20200827
  67. FLUCONAZOLE [Concomitant]
     Active Substance: FLUCONAZOLE
     Dosage: 400 MILLIGRAM, QD
     Route: 042
     Dates: start: 20200828, end: 20200831
  68. LEVAQUIN [Concomitant]
     Active Substance: LEVOFLOXACIN
     Indication: Urinary tract infection
     Dosage: 500 MILLIGRAM, QD
     Route: 042
     Dates: start: 20200825
  69. LEVAQUIN [Concomitant]
     Active Substance: LEVOFLOXACIN
     Indication: Klebsiella infection
  70. POTASSIUM CHLORIDE [Concomitant]
     Active Substance: POTASSIUM CHLORIDE
     Indication: Hypokalaemia
     Dosage: UNK
     Route: 042
     Dates: start: 20200825
  71. MICAFUNGIN [Concomitant]
     Active Substance: MICAFUNGIN
     Indication: Urinary tract infection
     Dosage: 1000 MILLIGRAM, QD
     Route: 042
     Dates: start: 20200831, end: 20200911
  72. MICAFUNGIN [Concomitant]
     Active Substance: MICAFUNGIN
     Indication: Fungaemia
  73. SEROQUEL [Concomitant]
     Active Substance: QUETIAPINE FUMARATE
     Indication: Insomnia
     Dosage: 25 MILLIGRAM, BID
     Route: 048
     Dates: start: 20200901, end: 20210928
  74. HALOPERIDOL [Concomitant]
     Active Substance: HALOPERIDOL
     Indication: Psychotic disorder
     Dosage: 5 MILLIGRAM
     Route: 058
     Dates: start: 20200901
  75. ZITHROMAX [Concomitant]
     Active Substance: AZITHROMYCIN DIHYDRATE
     Indication: Pneumonia
     Dosage: 500 MILLIGRAM, QD
     Route: 042
     Dates: start: 20200827, end: 20200829
  76. RISPERIDONE [Concomitant]
     Active Substance: RISPERIDONE
     Indication: Psychotic disorder
     Dosage: 1 MILLIGRAM, BID
     Route: 048
     Dates: start: 20200901
  77. IPRATROPIUM [Concomitant]
     Active Substance: IPRATROPIUM
     Indication: Pneumonia
     Dosage: 0.05 MILLIGRAM
     Route: 050
     Dates: start: 20200826, end: 20200827
  78. LORAZEPAM [Concomitant]
     Active Substance: LORAZEPAM
     Indication: Anxiety
     Dosage: 0.5 MILLIGRAM
     Route: 058
     Dates: start: 20200826, end: 20200826
  79. FLAGYL [Concomitant]
     Active Substance: METRONIDAZOLE\METRONIDAZOLE HYDROCHLORIDE
     Indication: Sepsis
     Dosage: UNK
     Dates: start: 20211203
  80. ISOVUE [Concomitant]
     Active Substance: IOPAMIDOL
     Indication: Contrast media reaction
     Dosage: UNK
     Route: 042
     Dates: start: 20211203, end: 20211203
  81. MYCAMINE [Concomitant]
     Active Substance: MICAFUNGIN SODIUM
     Indication: Candida infection
     Dosage: 150 MILLIGRAM, QD
     Route: 042
     Dates: start: 20210718, end: 20210729
  82. PANTOPRAZOLE [Concomitant]
     Active Substance: PANTOPRAZOLE
     Indication: Nausea
     Dosage: 40 MILLIGRAM, QD
     Route: 042
     Dates: start: 20210718, end: 20210729
  83. BENADRYL [Concomitant]
     Active Substance: DIPHENHYDRAMINE HYDROCHLORIDE
     Indication: Multiple allergies
     Dosage: 25 MILLIGRAM
     Route: 042
     Dates: start: 20210718, end: 20210729
  84. DILAUDID [Concomitant]
     Active Substance: HYDROMORPHONE HYDROCHLORIDE
     Indication: Pain
     Dosage: 1 MILLIGRAM
     Route: 042
     Dates: start: 20210724, end: 20210729
  85. ATIVAN [Concomitant]
     Active Substance: LORAZEPAM
     Indication: Anxiety
     Dosage: 1 MILLIGRAM
     Route: 042
     Dates: start: 20210718, end: 20210729
  86. TECHNETIUM TC-99M ARCITUMOMAB [Concomitant]
     Active Substance: TECHNETIUM TC-99M ARCITUMOMAB
     Indication: Contrast media reaction
     Dosage: UNK
     Route: 058
     Dates: start: 20210717, end: 20210717
  87. AMBIEN [Concomitant]
     Active Substance: ZOLPIDEM TARTRATE
     Indication: Insomnia
     Dosage: 5 MILLIGRAM
     Route: 048
     Dates: start: 20210718, end: 20210729
  88. PERCOCET [Concomitant]
     Active Substance: ACETAMINOPHEN\OXYCODONE HYDROCHLORIDE
     Indication: Pain
     Dosage: 10 MILLIGRAM
     Route: 048
     Dates: start: 20210718, end: 20210729
  89. PERCOCET [Concomitant]
     Active Substance: ACETAMINOPHEN\OXYCODONE HYDROCHLORIDE
     Dosage: 5 MILLIGRAM
     Route: 048
     Dates: start: 20210718, end: 20210729

REACTIONS (4)
  - Device dislocation [Recovered/Resolved]
  - Aspartate aminotransferase increased [Recovered/Resolved]
  - Anaemia [Recovered/Resolved]
  - Blood alkaline phosphatase increased [Recovered/Resolved]

NARRATIVE: CASE EVENT DATE: 20210928
